FAERS Safety Report 6253623-1 (Version None)
Quarter: 2009Q3

REPORT INFORMATION
  Report Type: 
  Country: None (occurrence: None)
  Receive Date: 20090701
  Receipt Date: 20090620
  Transmission Date: 20100115
  Serious: Yes (Other)
  Sender: FDA-Public Use
  Company Number: US-PFIZER INC-2009230433

PATIENT
  Sex: Female
  Weight: 49.887 kg

DRUGS (2)
  1. LYRICA [Suspect]
     Indication: NEURALGIA
     Dosage: 150 MG, 2X/DAY
     Dates: start: 20060401
  2. TYLENOL W/ CODEINE NO. 4 [Concomitant]
     Dosage: UNK

REACTIONS (1)
  - NEOPLASM [None]
